FAERS Safety Report 9147858 (Version 1)
Quarter: 2013Q1

REPORT INFORMATION
  Report Type: Spontaneous
  Country: US (occurrence: US)
  Receive Date: 20130307
  Receipt Date: 20130307
  Transmission Date: 20140127
  Serious: Yes (Other)
  Sender: FDA-Public Use
  Company Number: CHPA2013US004048

PATIENT
  Age: 68 Year
  Sex: Female

DRUGS (3)
  1. EXCEDRIN EXTRA STRENGTH [Suspect]
     Indication: HEADACHE
     Dosage: UNK, UNK
     Route: 048
  2. SALINE [Concomitant]
     Dosage: UNK, UNK
     Route: 045
  3. BAYER ASPIRIN [Concomitant]
     Dosage: 1 UNK, QD
     Route: 048
     Dates: start: 2003

REACTIONS (8)
  - Loss of consciousness [Recovered/Resolved]
  - Lymphocytic leukaemia [Recovered/Resolved]
  - Cyst [Recovered/Resolved]
  - Lower limb fracture [Unknown]
  - Blood potassium decreased [Recovered/Resolved]
  - Fall [Recovered/Resolved]
  - Lacrimation increased [Recovered/Resolved]
  - Sinus congestion [Recovered/Resolved]
